FAERS Safety Report 20875446 (Version 2)
Quarter: 2022Q4

REPORT INFORMATION
  Report Type: Spontaneous
  Country: CA (occurrence: CA)
  Receive Date: 20220526
  Receipt Date: 20221128
  Transmission Date: 20230112
  Serious: Yes (Hospitalization)
  Sender: FDA-Public Use
  Company Number: CA-SAMSUNG BIOEPIS-SB-2022-12236

PATIENT
  Age: 72 Year
  Sex: Female
  Weight: 70 kg

DRUGS (1)
  1. INFLIXIMAB [Suspect]
     Active Substance: INFLIXIMAB
     Indication: Crohn^s disease
     Route: 042

REACTIONS (14)
  - Balance disorder [Recovered/Resolved]
  - Condition aggravated [Recovered/Resolved]
  - Constipation [Recovered/Resolved]
  - Cystitis [Recovered/Resolved]
  - Diverticulum [Recovered/Resolved]
  - Fall [Recovered/Resolved]
  - Flatulence [Recovered/Resolved]
  - Fungal infection [Recovered/Resolved]
  - Hand fracture [Recovered/Resolved]
  - Patella fracture [Recovered/Resolved]
  - Weight decreased [Recovered/Resolved]
  - Wrist fracture [Recovered/Resolved]
  - Off label use [Recovered/Resolved]
  - Intentional product use issue [Recovered/Resolved]
